FAERS Safety Report 20490714 (Version 3)
Quarter: 2022Q1

REPORT INFORMATION
  Report Type: Other
  Country: GB (occurrence: GB)
  Receive Date: 20220218
  Receipt Date: 20220303
  Transmission Date: 20220424
  Serious: Yes (Other)
  Sender: FDA-Public Use
  Company Number: GB-002147023-NVSC2022GB024329

PATIENT

DRUGS (13)
  1. ROPINIROLE HYDROCHLORIDE [Suspect]
     Active Substance: ROPINIROLE HYDROCHLORIDE
     Indication: Product used for unknown indication
     Dosage: 2 MG
     Route: 065
  2. ROPINIROLE HYDROCHLORIDE [Suspect]
     Active Substance: ROPINIROLE HYDROCHLORIDE
     Dosage: 18 MG
     Route: 065
  3. ROPINIROLE HYDROCHLORIDE [Suspect]
     Active Substance: ROPINIROLE HYDROCHLORIDE
     Dosage: 2 MG
     Route: 065
  4. ROPINIROLE HYDROCHLORIDE [Suspect]
     Active Substance: ROPINIROLE HYDROCHLORIDE
     Dosage: 18 MG
     Route: 065
  5. ENTACAPONE [Suspect]
     Active Substance: ENTACAPONE
     Indication: Product used for unknown indication
     Dosage: 200 MG, QD
     Route: 065
  6. ENTACAPONE [Suspect]
     Active Substance: ENTACAPONE
     Dosage: 200 MILLIGRAM, QD
     Route: 065
  7. LANSOPRAZOLE [Suspect]
     Active Substance: LANSOPRAZOLE
     Indication: Product used for unknown indication
     Dosage: UNK
     Route: 065
  8. LANSOPRAZOLE [Suspect]
     Active Substance: LANSOPRAZOLE
     Dosage: UNK
     Route: 065
  9. POLYETHYLENE GLYCOL 3350\POTASSIUM CHLORIDE\SODIUM BICARBONATE\SODIUM [Suspect]
     Active Substance: POLYETHYLENE GLYCOL 3350\POTASSIUM CHLORIDE\SODIUM BICARBONATE\SODIUM CHLORIDE
     Indication: Product used for unknown indication
     Dosage: UNK
     Route: 065
  10. POLYETHYLENE GLYCOL 3350\POTASSIUM CHLORIDE\SODIUM BICARBONATE\SODIUM [Suspect]
     Active Substance: POLYETHYLENE GLYCOL 3350\POTASSIUM CHLORIDE\SODIUM BICARBONATE\SODIUM CHLORIDE
     Dosage: UNK
     Route: 065
  11. MIRTAZAPINE [Suspect]
     Active Substance: MIRTAZAPINE
     Indication: Product used for unknown indication
     Dosage: 30 MG
     Route: 065
  12. SINEMET [Suspect]
     Active Substance: CARBIDOPA\LEVODOPA
     Indication: Product used for unknown indication
     Dosage: 125 MG (5 TIMES IN DAY)
     Route: 065
  13. SINEMET [Suspect]
     Active Substance: CARBIDOPA\LEVODOPA
     Dosage: 125 MG (5 TIMES IN DAY)
     Route: 065

REACTIONS (14)
  - Dystonia [Unknown]
  - Balance disorder [Unknown]
  - Gait disturbance [Unknown]
  - Parkinsonian gait [Unknown]
  - Musculoskeletal stiffness [Unknown]
  - Quality of life decreased [Unknown]
  - Product prescribing issue [Unknown]
  - Adverse drug reaction [Unknown]
  - Incorrect dose administered [Unknown]
  - Constipation [Unknown]
  - Gambling [Unknown]
  - Impulsive behaviour [Unknown]
  - Compulsive shopping [Unknown]
  - Eating disorder [Unknown]
